FAERS Safety Report 17020904 (Version 1)
Quarter: 2019Q4

REPORT INFORMATION
  Report Type: Report from Study
  Country: AR (occurrence: AR)
  Receive Date: 20191112
  Receipt Date: 20191112
  Transmission Date: 20200122
  Serious: Yes (Death)
  Sender: FDA-Public Use
  Company Number: AR-BAYER-2019-203153

PATIENT
  Age: 55 Year
  Sex: Female

DRUGS (1)
  1. NEXAVAR [Suspect]
     Active Substance: SORAFENIB
     Indication: THYROID CANCER
     Dosage: UNK
     Dates: start: 20190419, end: 20191029

REACTIONS (2)
  - Cardiac arrest [Fatal]
  - Tracheal haemorrhage [Fatal]

NARRATIVE: CASE EVENT DATE: 20191029
